FAERS Safety Report 18923613 (Version 2)
Quarter: 2021Q1

REPORT INFORMATION
  Report Type: Spontaneous
  Country: GB (occurrence: GB)
  Receive Date: 20210222
  Receipt Date: 20210302
  Transmission Date: 20210420
  Serious: Yes (Death, Other)
  Sender: FDA-Public Use
  Company Number: GB-SA-2020SA361619

PATIENT
  Age: 72 Year
  Sex: Female

DRUGS (5)
  1. INSULIN LISPRO [Suspect]
     Active Substance: INSULIN LISPRO
     Dosage: QD, SITE OF INJECTION: TUMMY
     Route: 065
     Dates: start: 20180313
  2. LEVEMIR [Suspect]
     Active Substance: INSULIN DETEMIR
     Dosage: QD, SITE OF INJECTION: TUMMY
     Route: 065
     Dates: start: 20180313
  3. ASPIRIN. [Concomitant]
     Active Substance: ASPIRIN
     Indication: CARDIAC DISORDER
     Dosage: UNK
     Route: 065
  4. SIMVASTATIN. [Concomitant]
     Active Substance: SIMVASTATIN
     Indication: BLOOD PRESSURE MEASUREMENT
     Dosage: UNK
     Route: 065
  5. INSULIN HUMAN NOS [Suspect]
     Active Substance: INSULIN HUMAN
     Indication: DIABETES MELLITUS
     Dosage: UNK
     Route: 065

REACTIONS (3)
  - Bladder disorder [Fatal]
  - Myocardial infarction [Fatal]
  - Hepatic failure [Fatal]
